FAERS Safety Report 12849827 (Version 2)
Quarter: 2016Q4

REPORT INFORMATION
  Report Type: Spontaneous
  Country: US (occurrence: US)
  Receive Date: 20161014
  Receipt Date: 20161117
  Transmission Date: 20170207
  Serious: Yes (Other)
  Sender: FDA-Public Use
  Company Number: US-ROCHE-1794191

PATIENT
  Age: 66 Year
  Sex: Male

DRUGS (3)
  1. ESBRIET [Suspect]
     Active Substance: PIRFENIDONE
     Indication: IDIOPATHIC PULMONARY FIBROSIS
     Dosage: 3 PILLS TID
     Route: 048
     Dates: start: 20150601
  2. OXYGEN. [Concomitant]
     Active Substance: OXYGEN
  3. CELLCEPT [Suspect]
     Active Substance: MYCOPHENOLATE MOFETIL\MYCOPHENOLATE MOFETIL HYDROCHLORIDE
     Indication: PRODUCT USED FOR UNKNOWN INDICATION
     Route: 048

REACTIONS (9)
  - Weight decreased [Recovered/Resolved]
  - Anger [Unknown]
  - Nausea [Recovered/Resolved]
  - Decreased appetite [Recovered/Resolved]
  - Sunburn [Recovered/Resolved]
  - Throat cancer [Unknown]
  - Lip dry [Unknown]
  - Skin exfoliation [Recovered/Resolved]
  - Cough [Unknown]

NARRATIVE: CASE EVENT DATE: 201506
